FAERS Safety Report 8100788-2 (Version None)
Quarter: 2012Q1

REPORT INFORMATION
  Report Type: 
  Country: None (occurrence: None)
  Receive Date: 20120129
  Receipt Date: 20111010
  Transmission Date: 20120608
  Serious: No
  Sender: FDA-Public Use
  Company Number: US-ABBOTT-11P-163-0864331-00

PATIENT
  Sex: Male
  Weight: 63.106 kg

DRUGS (5)
  1. PREDNISONE TAB [Concomitant]
     Indication: RHEUMATOID ARTHRITIS
     Dosage: 10 TO 20 MG DAILY
  2. CIPROFLOXACIN [Concomitant]
     Indication: CHRONIC OBSTRUCTIVE PULMONARY DISEASE
  3. CIPROFLOXACIN [Concomitant]
     Indication: EMPHYSEMA
  4. HUMIRA [Suspect]
     Indication: RHEUMATOID ARTHRITIS
     Dates: start: 20110920, end: 20111004
  5. PAXIL [Concomitant]
     Indication: ANXIETY

REACTIONS (5)
  - EAR DISORDER [None]
  - GAIT DISTURBANCE [None]
  - INJECTION SITE PAIN [None]
  - PAIN IN EXTREMITY [None]
  - BURNING SENSATION [None]
